APPROVED DRUG PRODUCT: DICYCLOMINE HYDROCHLORIDE
Active Ingredient: DICYCLOMINE HYDROCHLORIDE
Strength: 20MG
Dosage Form/Route: TABLET;ORAL
Application: A085223 | Product #001 | TE Code: AB
Applicant: WATSON LABORATORIES INC
Approved: Jul 30, 1986 | RLD: No | RS: Yes | Type: RX